FAERS Safety Report 21162033 (Version 2)
Quarter: 2022Q3

REPORT INFORMATION
  Report Type: Report from Study
  Country: US (occurrence: US)
  Receive Date: 20220802
  Receipt Date: 20220804
  Transmission Date: 20221027
  Serious: Yes (Hospitalization, Other)
  Sender: FDA-Public Use
  Company Number: US-JNJFOC-20220721342

PATIENT
  Age: 72 Year
  Sex: Male
  Weight: 59.1 kg

DRUGS (6)
  1. SELEXIPAG [Suspect]
     Active Substance: SELEXIPAG
     Indication: Pulmonary arterial hypertension
     Route: 048
  2. SELEXIPAG [Suspect]
     Active Substance: SELEXIPAG
     Route: 048
  3. REMODULIN [Suspect]
     Active Substance: TREPROSTINIL
     Indication: Pulmonary arterial hypertension
     Route: 042
  4. REMODULIN [Suspect]
     Active Substance: TREPROSTINIL
     Route: 042
  5. AMBRISENTAN [Concomitant]
     Active Substance: AMBRISENTAN
  6. SILDENAFIL CITRATE [Concomitant]
     Active Substance: SILDENAFIL CITRATE

REACTIONS (6)
  - Right ventricular failure [Unknown]
  - Pericardial effusion [Unknown]
  - Pulmonary arterial pressure increased [Unknown]
  - Therapy change [Unknown]
  - Fluid retention [Unknown]
  - Diarrhoea [Unknown]

NARRATIVE: CASE EVENT DATE: 20220715
